FAERS Safety Report 19082279 (Version 9)
Quarter: 2022Q1

REPORT INFORMATION
  Report Type: Spontaneous
  Country: US (occurrence: US)
  Receive Date: 20210401
  Receipt Date: 20220311
  Transmission Date: 20220424
  Serious: Yes (Hospitalization)
  Sender: FDA-Public Use
  Company Number: US-GLOBAL BLOOD THERAPEUTICS INC-US-GBT-21-00982

PATIENT
  Age: 19 Year
  Sex: Female

DRUGS (27)
  1. OXBRYTA [Suspect]
     Active Substance: VOXELOTOR
     Indication: Sickle cell disease
     Route: 048
     Dates: start: 20191227
  2. OXBRYTA [Suspect]
     Active Substance: VOXELOTOR
     Indication: Anaemia
     Route: 048
  3. OXBRYTA [Suspect]
     Active Substance: VOXELOTOR
     Route: 048
  4. OXBRYTA [Suspect]
     Active Substance: VOXELOTOR
     Route: 048
     Dates: end: 20200127
  5. OXBRYTA [Suspect]
     Active Substance: VOXELOTOR
     Route: 048
     Dates: start: 20200426
  6. OXBRYTA [Suspect]
     Active Substance: VOXELOTOR
     Route: 048
     Dates: start: 20210323, end: 20210517
  7. OXBRYTA [Suspect]
     Active Substance: VOXELOTOR
     Route: 048
     Dates: start: 20210601, end: 20210608
  8. OXBRYTA [Suspect]
     Active Substance: VOXELOTOR
     Route: 048
     Dates: start: 20210611
  9. HYDROXYUREA [Concomitant]
     Active Substance: HYDROXYUREA
     Indication: Sickle cell disease
     Route: 048
     Dates: start: 20180928
  10. PENICILLIN [Concomitant]
     Active Substance: PENICILLIN
     Indication: Product used for unknown indication
     Route: 048
     Dates: start: 20190301, end: 20211030
  11. MONTELUKAST [Concomitant]
     Active Substance: MONTELUKAST SODIUM
     Indication: Sickle cell disease
     Route: 048
     Dates: start: 20180928, end: 20211103
  12. VITAMIN D [Concomitant]
     Active Substance: VITAMIN D NOS
     Indication: Sickle cell disease
     Route: 048
     Dates: start: 20180928
  13. SYMBICORT [Concomitant]
     Active Substance: BUDESONIDE\FORMOTEROL FUMARATE DIHYDRATE
     Indication: Asthma
     Dosage: 2 PUFFS BID
     Dates: start: 20200211
  14. TYLENOL [Concomitant]
     Active Substance: ACETAMINOPHEN
     Indication: Sickle cell disease
     Route: 048
     Dates: start: 20161011
  15. IBUPROFEN [Concomitant]
     Active Substance: IBUPROFEN
     Indication: Sickle cell disease
     Route: 050
     Dates: start: 20181218
  16. DILAUDID [Concomitant]
     Active Substance: HYDROMORPHONE HYDROCHLORIDE
     Indication: Sickle cell disease
     Route: 048
     Dates: start: 20180928
  17. METHADONE [Concomitant]
     Active Substance: METHADONE HYDROCHLORIDE
     Indication: Pain
     Route: 048
     Dates: start: 20180928
  18. PRBC TRASNSFUSSIONS [Concomitant]
     Indication: Sickle cell disease
     Dates: start: 20190104
  19. PREVACID [Concomitant]
     Active Substance: LANSOPRAZOLE
     Indication: Sickle cell disease
     Route: 048
     Dates: start: 20180413
  20. FOLIC ACID [Concomitant]
     Active Substance: FOLIC ACID
     Indication: Sickle cell disease
     Route: 048
     Dates: start: 20121105
  21. CYCLOBENZAPRINE [Concomitant]
     Active Substance: CYCLOBENZAPRINE
     Indication: Muscle spasms
     Route: 048
     Dates: start: 20181210
  22. PAMELOR [Concomitant]
     Active Substance: NORTRIPTYLINE HYDROCHLORIDE
     Indication: Sickle cell disease
     Route: 048
     Dates: start: 20180928, end: 20200501
  23. FLUTICASONE [Concomitant]
     Active Substance: FLUTICASONE
     Indication: Asthma
     Dosage: 110MCG
     Route: 045
     Dates: start: 20180928, end: 20200211
  24. ZOFRAN [Concomitant]
     Active Substance: ONDANSETRON HYDROCHLORIDE
     Indication: Vomiting
     Dosage: 2-MG/ML
     Route: 042
     Dates: start: 20200103, end: 20200113
  25. LEVAQUIN [Concomitant]
     Active Substance: LEVOFLOXACIN
     Indication: Burkholderia cepacia complex infection
     Route: 048
     Dates: start: 20161116, end: 20200501
  26. GAMUNEX-C [Concomitant]
     Active Substance: HUMAN IMMUNOGLOBULIN G
     Indication: Immunodeficiency common variable
     Route: 042
     Dates: start: 20200110, end: 20200110
  27. MIRALAX [Concomitant]
     Active Substance: POLYETHYLENE GLYCOL 3350
     Indication: Constipation
     Route: 048
     Dates: start: 20171129, end: 20210228

REACTIONS (15)
  - Sickle cell anaemia with crisis [Unknown]
  - Sickle cell anaemia with crisis [Recovered/Resolved]
  - Sickle cell anaemia with crisis [Recovered/Resolved]
  - Mycobacterial infection [Recovered/Resolved]
  - Epstein-Barr virus infection [Recovered/Resolved]
  - Sickle cell anaemia with crisis [Recovered/Resolved]
  - Clostridium difficile colitis [Recovered/Resolved]
  - Colonoscopy [Unknown]
  - Chest pain [Unknown]
  - Sickle cell anaemia with crisis [Not Recovered/Not Resolved]
  - Pruritus [Not Recovered/Not Resolved]
  - Hypersensitivity [Recovered/Resolved]
  - Rash [Not Recovered/Not Resolved]
  - Product dose omission issue [Unknown]
  - Off label use [Unknown]

NARRATIVE: CASE EVENT DATE: 20200103
